FAERS Safety Report 11645932 (Version 1)
Quarter: 2015Q4

REPORT INFORMATION
  Report Type: Spontaneous
  Country: US (occurrence: US)
  Receive Date: 20151020
  Receipt Date: 20151020
  Transmission Date: 20160304
  Serious: No
  Sender: FDA-Public Use
  Company Number: US-ELI_LILLY_AND_COMPANY-US201509007326

PATIENT
  Sex: Female

DRUGS (6)
  1. ADCIRCA [Suspect]
     Active Substance: TADALAFIL
     Indication: PRODUCT USED FOR UNKNOWN INDICATION
     Dosage: UNK, UNKNOWN
     Route: 065
  2. FLOLAN [Suspect]
     Active Substance: EPOPROSTENOL SODIUM
     Dosage: 21 NG, UNKNOWN (21 NG/KG/MIN CONTINUOUSLY)
     Route: 042
  3. FLOLAN [Suspect]
     Active Substance: EPOPROSTENOL SODIUM
     Indication: PULMONARY ARTERIAL HYPERTENSION
     Dosage: 21 NG, UNKNOWN (21 NG/KG/MIN CONTINUOUSLY)
     Route: 042
  4. LETAIRIS [Suspect]
     Active Substance: AMBRISENTAN
     Indication: PRODUCT USED FOR UNKNOWN INDICATION
     Dosage: UNK, UNKNOWN
     Route: 065
  5. FLOLAN [Suspect]
     Active Substance: EPOPROSTENOL SODIUM
     Dosage: 21 NG, UNKNOWN (21 NG/KG/MIN CONTINUOUSLY)
     Route: 042
  6. COUMADIN [Suspect]
     Active Substance: WARFARIN SODIUM
     Indication: PRODUCT USED FOR UNKNOWN INDICATION
     Dosage: UNK, UNKNOWN
     Route: 065

REACTIONS (13)
  - Upper respiratory tract infection [Unknown]
  - Erythema [Recovered/Resolved]
  - Fatigue [Unknown]
  - Asthenia [Unknown]
  - Pain [Recovered/Resolved]
  - Flushing [Unknown]
  - Ear infection [Unknown]
  - Anaemia [Unknown]
  - Haemoglobin decreased [Unknown]
  - Asthma [Unknown]
  - Dermatitis contact [Unknown]
  - Anxiety [Unknown]
  - Tachycardia [Unknown]
